FAERS Safety Report 9542244 (Version 1)
Quarter: 2013Q3

REPORT INFORMATION
  Report Type: Spontaneous
  Country: US (occurrence: None)
  Receive Date: 20130918
  Receipt Date: 20130918
  Transmission Date: 20140515
  Serious: No
  Sender: FDA-Public Use
  Company Number: 2013CT000063

PATIENT
  Age: 36 Year
  Sex: Male

DRUGS (10)
  1. KORLYM [Suspect]
     Indication: CUSHING^S SYNDROME
     Dates: start: 20130703
  2. BYSTOLIC [Concomitant]
  3. SPIRONOLACTONE [Concomitant]
  4. PROZAC [Concomitant]
  5. BUSPIRONE [Concomitant]
  6. DICYCLOMINE [Concomitant]
  7. AMLODIPINE [Concomitant]
  8. VITAMIN D [Concomitant]
  9. IBUPROFEN [Concomitant]
  10. TYLENOL [Concomitant]

REACTIONS (2)
  - Arthralgia [None]
  - Tic [None]
